FAERS Safety Report 6892778-2 (Version None)
Quarter: 2010Q3

REPORT INFORMATION
  Report Type: 
  Country: None (occurrence: None)
  Receive Date: 20100731
  Receipt Date: 20080331
  Transmission Date: 20110219
  Serious: No
  Sender: FDA-Public Use
  Company Number: US-PFIZER INC-2008028569

PATIENT
  Sex: Female

DRUGS (2)
  1. SULFASALAZINE [Suspect]
  2. METHOTREXATE [Suspect]
     Route: 051

REACTIONS (1)
  - RASH MACULAR [None]
